FAERS Safety Report 15004660 (Version 2)
Quarter: 2019Q1

REPORT INFORMATION
  Report Type: Spontaneous
  Country: US (occurrence: US)
  Receive Date: 20180613
  Receipt Date: 20190311
  Transmission Date: 20190417
  Serious: Yes (Hospitalization)
  Sender: FDA-Public Use
  Company Number: US-AUROBINDO-AUR-APL-2017-46650

PATIENT

DRUGS (8)
  1. RISPERIDONE. [Interacting]
     Active Substance: RISPERIDONE
     Dosage: DEPOT
     Route: 065
  2. CLOZAPINE. [Interacting]
     Active Substance: CLOZAPINE
     Dosage: 25 MILLIGRAM
     Route: 065
  3. RISPERIDONE. [Suspect]
     Active Substance: RISPERIDONE
     Indication: SCHIZOAFFECTIVE DISORDER
     Dosage: UNK
     Route: 048
  4. CLOZAPINE. [Interacting]
     Active Substance: CLOZAPINE
     Indication: SCHIZOAFFECTIVE DISORDER
     Dosage: UNK
     Route: 065
  5. CLOZAPINE. [Interacting]
     Active Substance: CLOZAPINE
     Dosage: 125 MG IN THE MORNING AND 75 MG IN THE EVENING
     Route: 065
  6. RISPERIDONE. [Interacting]
     Active Substance: RISPERIDONE
     Dosage: UNK
     Route: 065
  7. RISPERIDONE. [Interacting]
     Active Substance: RISPERIDONE
     Dosage: 2 MILLIGRAM
     Route: 048
  8. RISPERIDONE. [Interacting]
     Active Substance: RISPERIDONE
     Dosage: BIWEEKLY DEPOT ()
     Route: 065

REACTIONS (4)
  - Extrapyramidal disorder [Recovered/Resolved]
  - Tremor [Unknown]
  - Drug interaction [Unknown]
  - Dystonia [Unknown]
